FAERS Safety Report 10152609 (Version 1)
Quarter: 2014Q2

REPORT INFORMATION
  Report Type: Spontaneous
  Country: US (occurrence: None)
  Receive Date: 20140502
  Receipt Date: 20140502
  Transmission Date: 20141212
  Serious: Yes (Hospitalization)
  Sender: FDA-Public Use
  Company Number: None

PATIENT
  Age: 54 Year
  Sex: Male
  Weight: 102.1 kg

DRUGS (1)
  1. CISPLATIN [Suspect]

REACTIONS (2)
  - Pancreatitis [None]
  - Dehydration [None]
